FAERS Safety Report 8999081 (Version 2)
Quarter: 2013Q1

REPORT INFORMATION
  Report Type: Spontaneous
  Country: US (occurrence: US)
  Receive Date: 20130103
  Receipt Date: 20130131
  Transmission Date: 20140127
  Serious: Yes (Hospitalization)
  Sender: FDA-Public Use
  Company Number: US-SANOFI-AVENTIS-2012SA094858

PATIENT
  Age: 51 Year
  Sex: Female
  Weight: 70 kg

DRUGS (6)
  1. LANTUS [Suspect]
     Route: 058
  2. ACETAMINOPAHEN [Concomitant]
     Indication: PAIN
  3. FLONASE [Concomitant]
  4. HYDROCODONE [Concomitant]
  5. PLAQUENIL [Concomitant]
  6. IBUPROFEN [Concomitant]

REACTIONS (1)
  - Hospitalisation [Recovered/Resolved]
